FAERS Safety Report 6071480-3 (Version None)
Quarter: 2009Q1

REPORT INFORMATION
  Report Type: 
  Country: None (occurrence: None)
  Receive Date: 20090206
  Receipt Date: 20090206
  Transmission Date: 20090719
  Serious: Yes (Other)
  Sender: FDA-Public Use
  Company Number: None

PATIENT
  Sex: Male
  Weight: 70.7611 kg

DRUGS (1)
  1. CYCLOBENZAPRINE [Suspect]
     Indication: SPINAL CORD INJURY
     Dosage: 10MG TID PO
     Route: 048
     Dates: start: 20090108

REACTIONS (2)
  - PRURITUS [None]
  - RASH [None]
